FAERS Safety Report 20288974 (Version 2)
Quarter: 2022Q1

REPORT INFORMATION
  Report Type: Spontaneous
  Country: US (occurrence: US)
  Receive Date: 20220104
  Receipt Date: 20220125
  Transmission Date: 20220423
  Serious: No
  Sender: FDA-Public Use
  Company Number: US-JNJFOC-20211238972

PATIENT
  Age: 95 Year
  Sex: Female
  Weight: 74.456 kg

DRUGS (2)
  1. XARELTO [Suspect]
     Active Substance: RIVAROXABAN
     Indication: Pulmonary thrombosis
     Route: 048
     Dates: start: 202110
  2. COVID-19 VACCINE [Concomitant]
     Indication: Prophylaxis

REACTIONS (3)
  - Dizziness [Unknown]
  - Body height decreased [Unknown]
  - Product packaging issue [Unknown]

NARRATIVE: CASE EVENT DATE: 20211001
